FAERS Safety Report 12889823 (Version 5)
Quarter: 2016Q4

REPORT INFORMATION
  Report Type: Spontaneous
  Country: US (occurrence: US)
  Receive Date: 20161027
  Receipt Date: 20161216
  Transmission Date: 20170207
  Serious: Yes (Hospitalization)
  Sender: FDA-Public Use
  Company Number: US-JNJFOC-20161017365

PATIENT
  Age: 79 Year
  Sex: Female
  Weight: 58.4 kg

DRUGS (17)
  1. XARELTO [Suspect]
     Active Substance: RIVAROXABAN
     Indication: CEREBROVASCULAR ACCIDENT PROPHYLAXIS
     Route: 048
     Dates: start: 20160630
  2. GLUCOSAMINE CHONDROITIN MSM [Concomitant]
     Dosage: 750/600/250 M??8:00 AM AND 8:00 PM
     Route: 065
  3. LACTAID [Concomitant]
     Active Substance: LACTASE
     Dosage: WITH MEAL
     Route: 048
  4. SIMETHICONE (DIMETHICONE) [Concomitant]
     Active Substance: DIMETHICONE
     Dosage: AFTER MEALS
     Route: 048
  5. XARELTO [Suspect]
     Active Substance: RIVAROXABAN
     Indication: ATRIAL FIBRILLATION
     Route: 048
     Dates: start: 20160630
  6. DEXILANT [Concomitant]
     Active Substance: DEXLANSOPRAZOLE
     Dosage: AT 8:00 AM
     Route: 065
  7. MAG OXIDE [Concomitant]
     Active Substance: MAGNESIUM OXIDE
     Dosage: AT 8:00 AM AND 8:00 PM
     Route: 048
  8. XARELTO [Suspect]
     Active Substance: RIVAROXABAN
     Indication: ATRIAL FIBRILLATION
     Dosage: AT 8:00 AM WITH FOOD
     Route: 048
     Dates: end: 20160629
  9. XARELTO [Suspect]
     Active Substance: RIVAROXABAN
     Indication: ANTICOAGULANT THERAPY
     Dosage: AT 8:00 AM WITH FOOD
     Route: 048
     Dates: end: 20160629
  10. KLONOPIN [Concomitant]
     Active Substance: CLONAZEPAM
     Dosage: 2.5 (0.5 AS NEEDED AT 8:00 AM AND 2 AT 11:00 PM)
     Route: 048
  11. KLOR-CON [Suspect]
     Active Substance: POTASSIUM CHLORIDE
     Indication: MINERAL SUPPLEMENTATION
     Route: 048
     Dates: start: 2015, end: 201606
  12. XARELTO [Suspect]
     Active Substance: RIVAROXABAN
     Indication: CEREBROVASCULAR ACCIDENT PROPHYLAXIS
     Dosage: AT 8:00 AM WITH FOOD
     Route: 048
     Dates: end: 20160629
  13. XARELTO [Suspect]
     Active Substance: RIVAROXABAN
     Indication: ANTICOAGULANT THERAPY
     Route: 048
     Dates: start: 20160630
  14. CALCIUM +D3 [Concomitant]
     Active Substance: CALCIUM\CHOLECALCIFEROL
     Dosage: AT 8:00 PM
     Route: 065
  15. TIKOSYN [Concomitant]
     Active Substance: DOFETILIDE
     Dosage: AT 8:00 AM AND 8:00 PM
     Route: 048
  16. MIRALAX [Concomitant]
     Active Substance: POLYETHYLENE GLYCOL 3350
     Dosage: AT 8:00 PM
     Route: 048
  17. VITAMINE C [Concomitant]
     Active Substance: ASCORBIC ACID
     Route: 065

REACTIONS (3)
  - Diarrhoea [Recovered/Resolved]
  - Diverticulum [Recovered/Resolved]
  - Rectal haemorrhage [Recovered/Resolved]

NARRATIVE: CASE EVENT DATE: 201604
